FAERS Safety Report 22249119 (Version 1)
Quarter: 2023Q2

REPORT INFORMATION
  Report Type: Spontaneous
  Country: KR (occurrence: KR)
  Receive Date: 20230425
  Receipt Date: 20230425
  Transmission Date: 20230721
  Serious: Yes (Life-Threatening, Hospitalization, Other)
  Sender: FDA-Public Use
  Company Number: KR-MLMSERVICE-2023040742112291

PATIENT
  Age: 51 Year
  Sex: Female

DRUGS (3)
  1. VANCOMYCIN [Suspect]
     Active Substance: VANCOMYCIN
     Indication: Bacterial pericarditis
  2. RIFAMPIN [Concomitant]
     Active Substance: RIFAMPIN
     Indication: Bacterial pericarditis
  3. GENTAMICIN [Concomitant]
     Active Substance: GENTAMICIN
     Indication: Bacterial pericarditis

REACTIONS (5)
  - Pleural effusion [Recovered/Resolved]
  - Renal impairment [Recovered/Resolved]
  - Pericardial effusion [Recovered/Resolved]
  - Drug reaction with eosinophilia and systemic symptoms [Recovered/Resolved]
  - Hepatic enzyme increased [Recovered/Resolved]
